FAERS Safety Report 19873329 (Version 1)
Quarter: 2021Q3

REPORT INFORMATION
  Report Type: Spontaneous
  Country: US (occurrence: US)
  Receive Date: 20210923
  Receipt Date: 20210923
  Transmission Date: 20211014
  Serious: Yes (Other)
  Sender: FDA-Public Use
  Company Number: US-TEVA-2021-US-1955582

PATIENT
  Age: 34 Year
  Sex: Female
  Weight: 60 kg

DRUGS (1)
  1. DISULFIRAM. [Suspect]
     Active Substance: DISULFIRAM
     Indication: LYME DISEASE
     Dosage: 6.25 MG/KG DAILY; 6.25 MG/KG/DAY FOR 6 MONTHS
     Route: 065

REACTIONS (3)
  - Off label use [Unknown]
  - Fatigue [Unknown]
  - Psychiatric symptom [Unknown]
